FAERS Safety Report 9656586 (Version 2)
Quarter: 2013Q4

REPORT INFORMATION
  Report Type: Spontaneous
  Country: GB (occurrence: None)
  Receive Date: 20131028
  Receipt Date: 20131211
  Transmission Date: 20140711
  Serious: Yes (Other)
  Sender: FDA-Public Use
  Company Number: AUR-APL-2013-08769

PATIENT
  Age: 60 Year
  Sex: Male

DRUGS (4)
  1. SIMVASTATIN (SIMVASTATIN) [Suspect]
     Indication: HYPERCHOLESTEROLAEMIA
     Route: 048
  2. ASPIRIN (ACETYLSALICYLIC ACID) [Suspect]
     Indication: PRODUCT USED FOR UNKNOWN INDICATION
  3. CALCIUM (CALCIUM) [Suspect]
     Indication: PRODUCT USED FOR UNKNOWN INDICATION
  4. CYANOCOBALAMIN [Suspect]
     Indication: PRODUCT USED FOR UNKNOWN INDICATION

REACTIONS (9)
  - Dysphagia [None]
  - Throat lesion [None]
  - Tinnitus [None]
  - Deafness unilateral [None]
  - Dyspnoea [None]
  - Chest pain [None]
  - Paraesthesia [None]
  - Acoustic neuroma [None]
  - Inguinal hernia [None]
